FAERS Safety Report 25226424 (Version 1)
Quarter: 2025Q2

REPORT INFORMATION
  Report Type: Spontaneous
  Country: JP (occurrence: JP)
  Receive Date: 20250422
  Receipt Date: 20250422
  Transmission Date: 20250716
  Serious: Yes (Other)
  Sender: ALEXION PHARMACEUTICALS
  Company Number: JP-ASTRAZENECA-250037383_063010_P_1

PATIENT
  Age: 60 Year

DRUGS (29)
  1. DAPAGLIFLOZIN [Suspect]
     Active Substance: DAPAGLIFLOZIN
     Indication: Diabetes mellitus
     Dosage: 10 MILLIGRAM, QD
  2. BISOPROLOL [Concomitant]
     Active Substance: BISOPROLOL
     Indication: Cardiac failure congestive
  3. BISOPROLOL [Concomitant]
     Active Substance: BISOPROLOL
  4. BISOPROLOL [Concomitant]
     Active Substance: BISOPROLOL
  5. BISOPROLOL [Concomitant]
     Active Substance: BISOPROLOL
  6. ENTRESTO [Concomitant]
     Active Substance: SACUBITRIL\VALSARTAN
     Indication: Cardiac failure congestive
  7. SPIRONOLACTONE [Concomitant]
     Active Substance: SPIRONOLACTONE
     Indication: Cardiac failure congestive
  8. SPIRONOLACTONE [Concomitant]
     Active Substance: SPIRONOLACTONE
  9. FUROSEMIDE [Concomitant]
     Active Substance: FUROSEMIDE
     Indication: Cardiac failure congestive
  10. FUROSEMIDE [Concomitant]
     Active Substance: FUROSEMIDE
  11. FUROSEMIDE [Concomitant]
     Active Substance: FUROSEMIDE
  12. FUROSEMIDE [Concomitant]
     Active Substance: FUROSEMIDE
  13. FUROSEMIDE [Concomitant]
     Active Substance: FUROSEMIDE
  14. TOLVAPTAN [Concomitant]
     Active Substance: TOLVAPTAN
     Indication: Cardiac failure congestive
  15. PIMOBENDAN [Concomitant]
     Active Substance: PIMOBENDAN
     Indication: Cardiac failure congestive
  16. DOBUTAMINE [Concomitant]
     Active Substance: DOBUTAMINE HYDROCHLORIDE
     Route: 065
  17. DOBUTAMINE [Concomitant]
     Active Substance: DOBUTAMINE HYDROCHLORIDE
     Route: 065
  18. DOBUTAMINE [Concomitant]
     Active Substance: DOBUTAMINE HYDROCHLORIDE
     Route: 065
  19. DOBUTAMINE [Concomitant]
     Active Substance: DOBUTAMINE HYDROCHLORIDE
     Route: 065
  20. DOBUTAMINE [Concomitant]
     Active Substance: DOBUTAMINE HYDROCHLORIDE
     Route: 065
  21. INDAPAMIDE [Concomitant]
     Active Substance: INDAPAMIDE
     Route: 065
  22. VERICIGUAT [Concomitant]
     Active Substance: VERICIGUAT
     Route: 065
  23. SACUBITRIL [Concomitant]
     Active Substance: SACUBITRIL
     Route: 065
  24. ENALAPRIL [Concomitant]
     Active Substance: ENALAPRIL
     Route: 065
  25. ENALAPRIL [Concomitant]
     Active Substance: ENALAPRIL
     Route: 065
  26. ENALAPRIL [Concomitant]
     Active Substance: ENALAPRIL
     Route: 065
  27. AZOSEMIDE [Concomitant]
     Active Substance: AZOSEMIDE
     Route: 065
  28. AZOSEMIDE [Concomitant]
     Active Substance: AZOSEMIDE
     Route: 065
  29. DENOPAMINE [Concomitant]
     Active Substance: DENOPAMINE
     Route: 065

REACTIONS (12)
  - Cardiac failure congestive [Unknown]
  - Cardiac failure [Unknown]
  - Renal impairment [Unknown]
  - Dilated cardiomyopathy [Unknown]
  - Weight increased [Unknown]
  - Sleep apnoea syndrome [Unknown]
  - Atrial tachycardia [Unknown]
  - Insomnia [Unknown]
  - Rash [Unknown]
  - Diarrhoea [Unknown]
  - Nausea [Unknown]
  - Abdominal distension [Unknown]
